FAERS Safety Report 4707353-5 (Version None)
Quarter: 2005Q3

REPORT INFORMATION
  Report Type: 
  Country: None (occurrence: None)
  Receive Date: 20050701
  Receipt Date: 20050620
  Transmission Date: 20060218
  Serious: Yes (Other)
  Sender: FDA-Public Use
  Company Number: SGB1-2005-00291

PATIENT
  Sex: Female

DRUGS (3)
  1. MIDODRINE (MIDODRINE) TABLET [Suspect]
     Indication: SYNCOPE
  2. NEUROLEPTICS [Concomitant]
  3. LAXATIVES [Concomitant]

REACTIONS (2)
  - AGITATION [None]
  - INSOMNIA [None]
